FAERS Safety Report 16364859 (Version 2)
Quarter: 2019Q2

REPORT INFORMATION
  Report Type: Report from Study
  Country: UA (occurrence: UA)
  Receive Date: 20190529
  Receipt Date: 20190607
  Transmission Date: 20190711
  Serious: Yes (Hospitalization)
  Sender: FDA-Public Use
  Company Number: UA-ROCHE-2320025

PATIENT
  Age: 65 Year
  Sex: Female
  Weight: 73 kg

DRUGS (7)
  1. PERTUZUMAB. [Suspect]
     Active Substance: PERTUZUMAB
     Indication: HER-2 POSITIVE BREAST CANCER
     Dosage: DATE OF MOST RECENT DOSE OF STUDY DRUG PRIOR TO SAE ONSET: 20/MAR/2019 AT 10.50 WAS 420 MG
     Route: 042
     Dates: start: 20190116
  2. DOCETAXEL. [Suspect]
     Active Substance: DOCETAXEL
     Indication: HER-2 POSITIVE BREAST CANCER
     Dosage: DATE OF MOST RECENT DOSE OF STUDY DRUG E?PRIOR TO SAE ONSET : 20/MAR/2019 WITH DOSE OF 134 MG AT 12.
     Route: 042
     Dates: start: 20190116
  3. TRASTUZUMAB. [Suspect]
     Active Substance: TRASTUZUMAB
     Indication: HER-2 POSITIVE BREAST CANCER
     Dosage: DATE OF MOST RECENT DOSE OF STUDY DRUG PRIOR TO SAE ONSET 20/MAR/2019  WITH 450 MG AT 11.50
     Route: 042
     Dates: start: 20190116
  4. CYCLOPHOSPHAMIDE. [Suspect]
     Active Substance: CYCLOPHOSPHAMIDE
     Indication: HER-2 POSITIVE BREAST CANCER
     Dosage: DATE OF MOST RECENT DOSE OF STUDY DRUG CYCLOPHOSPHAMIDE?PRIOR TO SAE ONSET: 28/DEC/2018 AT 12.10_108
     Route: 042
     Dates: start: 20181024
  5. CO AMLESSA [Concomitant]
     Indication: HYPERTENSION
     Route: 048
  6. ZARCIO [Concomitant]
     Indication: PROPHYLAXIS
     Route: 058
     Dates: start: 20190327, end: 20190327
  7. DOXORUBICIN [Suspect]
     Active Substance: DOXORUBICIN
     Indication: HER-2 POSITIVE BREAST CANCER
     Dosage: DATE OF MOST RECENT DOSE OF STUDY DRUG A?PRIOR TO SAE ONSET 28 DEC 2018 108 MG AT 11.35
     Route: 042
     Dates: start: 20181024

REACTIONS (1)
  - Goitre [Recovered/Resolved]

NARRATIVE: CASE EVENT DATE: 20190422
